FAERS Safety Report 9465962 (Version 3)
Quarter: 2014Q1

REPORT INFORMATION
  Report Type: Spontaneous
  Country: JP (occurrence: JP)
  Receive Date: 20130820
  Receipt Date: 20140106
  Transmission Date: 20141002
  Serious: Yes (Other)
  Sender: FDA-Public Use
  Company Number: JP-ROCHE-1253699

PATIENT
  Age: 32 Year
  Sex: Female

DRUGS (12)
  1. MIRCERA [Suspect]
     Indication: NEPHROGENIC ANAEMIA
     Route: 042
     Dates: start: 20111115, end: 20130611
  2. CINACALCET HYDROCHLORIDE [Suspect]
     Indication: HYPERPARATHYROIDISM SECONDARY
     Route: 048
     Dates: start: 20101113, end: 20130713
  3. CINACALCET HYDROCHLORIDE [Suspect]
     Dosage: DOSE REDUCED.
     Route: 048
  4. CINACALCET HYDROCHLORIDE [Suspect]
     Route: 048
  5. BLOPRESS [Concomitant]
     Route: 048
     Dates: start: 20120121
  6. ARGAMATE [Concomitant]
     Indication: HYPERKALAEMIA
     Route: 048
  7. THYRADIN-S [Concomitant]
     Indication: HYPOTHYROIDISM
     Route: 048
  8. CALTAN [Concomitant]
     Indication: HYPERPHOSPHATAEMIA
     Dosage: DOSE REDUCED
     Route: 048
  9. NORVASC [Concomitant]
     Indication: HYPERTENSION
     Route: 048
  10. FERO-GRADUMET [Concomitant]
     Indication: IRON DEFICIENCY ANAEMIA
     Route: 048
  11. CARDENALIN [Concomitant]
     Indication: HYPERTENSION
     Route: 048
  12. EPOGIN S [Concomitant]
     Indication: NEPHROGENIC ANAEMIA
     Route: 042
     Dates: start: 201307

REACTIONS (1)
  - Haemoglobin decreased [Recovered/Resolved]
